FAERS Safety Report 12731675 (Version 1)
Quarter: 2016Q3

REPORT INFORMATION
  Report Type: Spontaneous
  Country: US (occurrence: US)
  Receive Date: 20160912
  Receipt Date: 20160912
  Transmission Date: 20161109
  Serious: No
  Sender: FDA-Public Use
  Company Number: US-PFIZER INC-2016409811

PATIENT
  Age: 81 Year
  Sex: Female

DRUGS (4)
  1. VASOTEC [Suspect]
     Active Substance: ENALAPRIL MALEATE
     Dosage: UNK
  2. PERCOCET [Suspect]
     Active Substance: ACETAMINOPHEN\OXYCODONE HYDROCHLORIDE
     Dosage: UNK
  3. LIPITOR [Suspect]
     Active Substance: ATORVASTATIN CALCIUM
     Dosage: UNK
  4. ATIVAN [Suspect]
     Active Substance: LORAZEPAM
     Dosage: UNK

REACTIONS (1)
  - Drug hypersensitivity [Unknown]
